FAERS Safety Report 24772931 (Version 7)
Quarter: 2025Q1

REPORT INFORMATION
  Report Type: Spontaneous
  Country: US (occurrence: US)
  Receive Date: 20241225
  Receipt Date: 20250225
  Transmission Date: 20250408
  Serious: Yes (Hospitalization, Other)
  Sender: ROCHE
  Company Number: US-ROCHE-10000163853

PATIENT
  Age: 53 Year
  Sex: Male
  Weight: 99.79 kg

DRUGS (4)
  1. LUCENTIS [Suspect]
     Active Substance: RANIBIZUMAB
     Indication: Presumed ocular histoplasmosis syndrome
     Dosage: STRENGTH: 0.5MG/.05ML
     Route: 031
     Dates: start: 2023
  2. LUCENTIS [Suspect]
     Active Substance: RANIBIZUMAB
     Dosage: STRENGTH: 0.5MG/.05ML
     Route: 031
  3. BISOPROLOL FUMARATE [Concomitant]
     Active Substance: BISOPROLOL FUMARATE
     Indication: Hypertension
     Route: 048
  4. HYDROCHLOROTHIAZIDE\TRIAMTERENE [Concomitant]
     Active Substance: HYDROCHLOROTHIAZIDE\TRIAMTERENE
     Indication: Hypertension
     Dosage: 37.5MG/25MG
     Route: 048

REACTIONS (7)
  - Endophthalmitis [Recovered/Resolved]
  - Off label use [Unknown]
  - Superficial injury of eye [Unknown]
  - Ocular hyperaemia [Unknown]
  - Blindness unilateral [Recovering/Resolving]
  - Eye swelling [Unknown]
  - Suspected transmission of an infectious agent via product [Unknown]

NARRATIVE: CASE EVENT DATE: 20230101
